FAERS Safety Report 23979222 (Version 1)
Quarter: 2024Q2

REPORT INFORMATION
  Report Type: Spontaneous
  Country: BE (occurrence: BE)
  Receive Date: 20240615
  Receipt Date: 20240615
  Transmission Date: 20240716
  Serious: Yes (Death)
  Sender: FDA-Public Use
  Company Number: BE-MLMSERVICE-20240528-PI079744-00262-2

PATIENT

DRUGS (6)
  1. PIOGLITAZONE [Suspect]
     Active Substance: PIOGLITAZONE
     Indication: Insulin resistance
     Route: 065
     Dates: start: 202306, end: 202306
  2. VANCOMYCIN [Concomitant]
     Active Substance: VANCOMYCIN
     Route: 065
     Dates: start: 20230602
  3. MEROPENEM [Concomitant]
     Active Substance: MEROPENEM
     Route: 065
     Dates: start: 20230602
  4. INSULIN NOS [Concomitant]
     Active Substance: INSULIN NOS
     Indication: Ketoacidosis
     Dosage: UP TO 800 UNITS PER DAY
     Route: 042
     Dates: start: 202305
  5. INSULIN NOS [Concomitant]
     Active Substance: INSULIN NOS
  6. VORICONAZOLE [Concomitant]
     Active Substance: VORICONAZOLE
     Route: 065
     Dates: start: 20230602

REACTIONS (2)
  - Septic shock [Fatal]
  - Liver function test abnormal [Unknown]

NARRATIVE: CASE EVENT DATE: 20230601
